FAERS Safety Report 8425550-2 (Version None)
Quarter: 2012Q2

REPORT INFORMATION
  Report Type: 
  Country: None (occurrence: None)
  Receive Date: 20120611
  Receipt Date: 20120531
  Transmission Date: 20120825
  Serious: Yes (Other)
  Sender: FDA-Public Use
  Company Number: CA-ELI_LILLY_AND_COMPANY-CA201206000263

PATIENT
  Age: 74 Year
  Sex: Female

DRUGS (4)
  1. VITAMIN D                          /00318501/ [Concomitant]
  2. CALCIUM                                 /N/A/ [Concomitant]
  3. METHOTREXATE [Concomitant]
  4. FORTEO [Suspect]
     Indication: OSTEOPOROSIS
     Dosage: 20 UG, UNK
     Route: 058
     Dates: start: 20101209

REACTIONS (3)
  - ANAEMIA [None]
  - RETINAL DETACHMENT [None]
  - FATIGUE [None]
